FAERS Safety Report 6252459-5 (Version None)
Quarter: 2009Q2

REPORT INFORMATION
  Report Type: 
  Country: None (occurrence: None)
  Receive Date: 20090629
  Receipt Date: 20090629
  Transmission Date: 20091009
  Serious: Yes (Other)
  Sender: FDA-Public Use
  Company Number: None

PATIENT
  Age: 50 Year
  Sex: Female
  Weight: 72.5755 kg

DRUGS (3)
  1. ZICAM NO-DRIP LIQUID NASAL GEL .50 FL OZ/15 ML [Suspect]
     Indication: NASOPHARYNGITIS
     Dosage: 1 APPL 1-2 TIMES WINTER MONTHS
     Dates: start: 20030101
  2. ZICAM NO-DRIP LIQUID NASAL GEL .50 FL OZ/15 ML [Suspect]
     Indication: NASOPHARYNGITIS
     Dosage: 1 APPL 1-2 TIMES WINTER MONTHS
     Dates: start: 20040101
  3. ZICAM NO-DRIP LIQUID NASAL GEL .50 FL OZ/15 ML [Suspect]
     Indication: NASOPHARYNGITIS
     Dosage: 1 APPL 1-2 TIMES WINTER MONTHS
     Dates: start: 20050101

REACTIONS (3)
  - NASAL MUCOSAL DISORDER [None]
  - SCAB [None]
  - SCAR [None]
